FAERS Safety Report 4482089-7 (Version None)
Quarter: 2004Q4

REPORT INFORMATION
  Report Type: 
  Country: None (occurrence: None)
  Receive Date: 20041020
  Receipt Date: 20041011
  Transmission Date: 20050328
  Serious: Yes (Hospitalization)
  Sender: FDA-Public Use
  Company Number: 2004076849

PATIENT
  Sex: Female

DRUGS (7)
  1. NEURONTIN [Suspect]
     Indication: TRIGEMINAL NEURALGIA
     Dosage: 900 MG (300 MG, 3 IN 1 D), UNKNOWN
  2. TELMISARTAN (TELMISARTAN) [Concomitant]
  3. LOPRAZOLAM MESILATE (LOPRAZOLAM MESILATE) [Concomitant]
  4. CALCIUM CARBONATE (CALCIUM CARBONATE) [Concomitant]
  5. ALL OTHER THERAPEUTIC PRODUCTS (ALL OTHER THERAPEUTIC PRODUCTS) [Concomitant]
  6. FLUOXETINE HYDROCHLORIDE [Concomitant]
  7. ALENDRONATE SODIUM [Concomitant]

REACTIONS (1)
  - FALL [None]
